FAERS Safety Report 16078603 (Version 2)
Quarter: 2019Q2

REPORT INFORMATION
  Report Type: Spontaneous
  Country: US (occurrence: US)
  Receive Date: 20190315
  Receipt Date: 20190410
  Transmission Date: 20190711
  Serious: No
  Sender: FDA-Public Use
  Company Number: US-BRISTOL-MYERS SQUIBB COMPANY-BMS-2019-026105

PATIENT
  Sex: Female
  Weight: 59.87 kg

DRUGS (1)
  1. ORENCIA [Suspect]
     Active Substance: ABATACEPT
     Indication: SJOGREN^S SYNDROME
     Dosage: 125 MILLIGRAM, QWK
     Route: 058
     Dates: start: 201811

REACTIONS (3)
  - Cough [Unknown]
  - Influenza like illness [Unknown]
  - Product use in unapproved indication [Unknown]
